FAERS Safety Report 6662630-6 (Version None)
Quarter: 2010Q1

REPORT INFORMATION
  Report Type: 
  Country: None (occurrence: None)
  Receive Date: 20100329
  Receipt Date: 20100312
  Transmission Date: 20100710
  Serious: Yes (Other)
  Sender: FDA-Public Use
  Company Number: 2010AL001639

PATIENT
  Age: 69 Year
  Sex: Male

DRUGS (6)
  1. FLUDARABINE PHOSPHATE [Suspect]
     Indication: CHRONIC LYMPHOCYTIC LEUKAEMIA
     Dosage: QM; IV
     Route: 042
     Dates: start: 20090723, end: 20091217
  2. RITUXIMAB [Concomitant]
  3. CYCLOPHOSPHAMIDE [Concomitant]
  4. COTRIM [Concomitant]
  5. DOMPERIDONE [Concomitant]
  6. ALLOPURINOL [Concomitant]

REACTIONS (1)
  - MYELODYSPLASTIC SYNDROME [None]
